FAERS Safety Report 14391154 (Version 1)
Quarter: 2018Q1

REPORT INFORMATION
  Report Type: Spontaneous
  Country: US (occurrence: US)
  Receive Date: 20180112
  Receipt Date: 20180112
  Transmission Date: 20180509
  Serious: No
  Sender: FDA-Public Use
  Company Number: None

PATIENT
  Age: 65 Year
  Sex: Female

DRUGS (1)
  1. ENOXAPARIN 40MG SANOFI [Suspect]
     Active Substance: ENOXAPARIN
     Indication: ARTERIAL THROMBOSIS
     Route: 058
     Dates: start: 20161112

REACTIONS (1)
  - Arthralgia [None]

NARRATIVE: CASE EVENT DATE: 20171226
